FAERS Safety Report 18041543 (Version 1)
Quarter: 2020Q3

REPORT INFORMATION
  Report Type: Spontaneous
  Country: US (occurrence: US)
  Receive Date: 20200720
  Receipt Date: 20200720
  Transmission Date: 20201103
  Serious: Yes (Hospitalization, Other)
  Sender: FDA-Public Use
  Company Number: US-SUN PHARMACEUTICAL INDUSTRIES LTD-2019R1-230945

PATIENT
  Age: 33 Year
  Sex: Male

DRUGS (1)
  1. ACETAMINOPHEN. [Suspect]
     Active Substance: ACETAMINOPHEN
     Indication: PRODUCT USED FOR UNKNOWN INDICATION
     Dosage: #50 500 MG ACETAMINOPHEN TABLETS OVER THE PRESEDING 2 DAYS
     Route: 065

REACTIONS (7)
  - Hepatic enzyme increased [Unknown]
  - Acidosis [Unknown]
  - Abdominal pain [Recovering/Resolving]
  - Tachypnoea [Recovering/Resolving]
  - Overdose [Unknown]
  - Toxicity to various agents [Unknown]
  - Tachycardia [Recovering/Resolving]
